FAERS Safety Report 20076323 (Version 2)
Quarter: 2021Q4

REPORT INFORMATION
  Report Type: Spontaneous
  Country: DE (occurrence: DE)
  Receive Date: 20211116
  Receipt Date: 20211203
  Transmission Date: 20220303
  Serious: Yes (Other)
  Sender: FDA-Public Use
  Company Number: None

PATIENT

DRUGS (3)
  1. CYTOTEC [Suspect]
     Active Substance: MISOPROSTOL
     Indication: Labour induction
     Dosage: WHOLE TABLET 50UG, 8 TABLETS OVER 3 DAYS
     Route: 064
     Dates: start: 20200407, end: 20200411
  2. DINOPROSTONE [Suspect]
     Active Substance: DINOPROSTONE
     Indication: Labour induction
     Dosage: FIRST 1 MG, LATER AGAIN 2 MG
     Route: 064
     Dates: start: 20200410
  3. DINOPROSTONE [Suspect]
     Active Substance: DINOPROSTONE
     Dosage: 2 MG VAGINAL WITH MEMBRANE SWEEP AT 7:25
     Route: 064
     Dates: start: 20200411

REACTIONS (2)
  - Foetal exposure during delivery [Unknown]
  - Foetal heart rate disorder [Unknown]

NARRATIVE: CASE EVENT DATE: 20200411
